FAERS Safety Report 23654729 (Version 3)
Quarter: 2024Q2

REPORT INFORMATION
  Report Type: Spontaneous
  Country: SE (occurrence: SE)
  Receive Date: 20240320
  Receipt Date: 20240412
  Transmission Date: 20240716
  Serious: Yes (Hospitalization, Other)
  Sender: FDA-Public Use
  Company Number: SE-BRISTOL-MYERS SQUIBB COMPANY-2024-036478

PATIENT
  Age: 71 Year
  Sex: Male
  Weight: 76.7 kg

DRUGS (15)
  1. ASPIRIN [Suspect]
     Active Substance: ASPIRIN
     Indication: Cardiovascular event prophylaxis
     Dosage: 75 MILLIGRAM, QD
     Route: 048
     Dates: start: 20231221, end: 202402
  2. ELIQUIS [Suspect]
     Active Substance: APIXABAN
     Indication: Angina unstable
     Dosage: 2.5 MILLIGRAM, BID
     Route: 048
     Dates: start: 20211209, end: 20240214
  3. ELIQUIS [Suspect]
     Active Substance: APIXABAN
     Indication: Thrombosis prophylaxis
     Dosage: 2.5 MILLIGRAM, BID
     Route: 048
     Dates: start: 20240219, end: 20240227
  4. ELIQUIS [Suspect]
     Active Substance: APIXABAN
     Dosage: 2.5 MILLIGRAM, BID
     Route: 048
     Dates: start: 20240103, end: 20240215
  5. INSULIN NOS [Concomitant]
     Active Substance: INSULIN NOS
     Indication: Type 2 diabetes mellitus
     Dosage: UNK UNK, QD, 12
     Route: 058
  6. ZOPICLONE [Concomitant]
     Active Substance: ZOPICLONE
     Indication: Insomnia
     Dosage: 5 MILLIGRAM, QD
     Route: 048
     Dates: start: 20220121
  7. ALFUZOSIN [Concomitant]
     Active Substance: ALFUZOSIN
     Indication: Bladder diverticulum
     Dosage: 10 MILLIGRAM, QD
     Route: 048
  8. VALACYCLOVIR HYDROCHLORIDE [Concomitant]
     Active Substance: VALACYCLOVIR HYDROCHLORIDE
     Indication: Antiviral prophylaxis
     Dosage: 250 MILLIGRAM, BID
     Route: 048
     Dates: start: 20211203
  9. NOVORAPID [Concomitant]
     Active Substance: INSULIN ASPART
     Indication: Type 2 diabetes mellitus
     Dosage: UNK UNK, PRN, 4
     Route: 058
  10. ATORVASTATIN [Concomitant]
     Active Substance: ATORVASTATIN
     Indication: Hyperlipidaemia
     Dosage: 40 MILLIGRAM, QD
     Route: 048
  11. OXYCODONE [Concomitant]
     Active Substance: OXYCODONE\OXYCODONE HYDROCHLORIDE
     Indication: Pain in extremity
     Dosage: 5 MILLIGRAM, PRN
     Route: 048
     Dates: start: 20231130
  12. OMEPRAZOLE [Concomitant]
     Active Substance: OMEPRAZOLE
     Indication: Gastritis
     Dosage: 20 MILLIGRAM, BID
     Route: 048
     Dates: start: 20220329
  13. FELODIPINE [Concomitant]
     Active Substance: FELODIPINE
     Indication: Hypertension
     Dosage: 5 MILLIGRAM, QD
     Route: 048
     Dates: start: 20230822
  14. METOPROLOL [Concomitant]
     Active Substance: METOPROLOL
     Indication: Angina unstable
     Dosage: 25 MILLIGRAM, QD
     Route: 048
     Dates: start: 20240103
  15. METOPROLOL [Concomitant]
     Active Substance: METOPROLOL
     Indication: Prophylaxis

REACTIONS (5)
  - Haemorrhage urinary tract [Recovered/Resolved]
  - Haematuria [Recovered/Resolved]
  - Urinary tract infection pseudomonal [Unknown]
  - Anaemia [Recovered/Resolved]
  - Off label use [Unknown]

NARRATIVE: CASE EVENT DATE: 20240201
